FAERS Safety Report 6509887-X (Version None)
Quarter: 2009Q4

REPORT INFORMATION
  Report Type: 
  Country: None (occurrence: None)
  Receive Date: 20091222
  Receipt Date: 20091207
  Transmission Date: 20100525
  Serious: Yes (Hospitalization, Other)
  Sender: FDA-Public Use
  Company Number: PHHY2009US54765

PATIENT
  Age: 8 Year
  Sex: Female

DRUGS (11)
  1. CYCLOSPORINE [Suspect]
     Indication: LIVER TRANSPLANT
  2. AZATHIOPRINE [Suspect]
     Indication: IMMUNOSUPPRESSION
  3. PREDNISONE [Suspect]
     Indication: IMMUNOSUPPRESSION
  4. GLATIRAMER ACETATE [Suspect]
  5. CYCLOPHOSPHAMIDE [Concomitant]
  6. METHYLPREDNISOLONE SODIUM SUCCINATE [Concomitant]
  7. RITUXIMAB [Concomitant]
  8. VINCRISTINE [Concomitant]
  9. METHOTREXATE [Concomitant]
  10. HYDROCORTISONE [Concomitant]
  11. CYTARABINE [Concomitant]

REACTIONS (6)
  - EPSTEIN-BARR VIRUS ASSOCIATED LYMPHOPROLIFERATIVE DISORDER [None]
  - FATIGUE [None]
  - LYMPHADENOPATHY [None]
  - MULTIPLE SCLEROSIS [None]
  - OPTIC NEURITIS [None]
  - PYREXIA [None]
